FAERS Safety Report 7583758-2 (Version None)
Quarter: 2011Q2

REPORT INFORMATION
  Report Type: 
  Country: None (occurrence: None)
  Receive Date: 20110630
  Receipt Date: 20110623
  Transmission Date: 20111010
  Serious: Yes (Other)
  Sender: FDA-Public Use
  Company Number: CN-ROCHE-785284

PATIENT
  Age: 45 Year
  Sex: Female

DRUGS (2)
  1. RIBAVARIN [Suspect]
     Indication: HEPATITIS C
     Route: 048
     Dates: start: 20101101, end: 20101201
  2. PEGINTERFERON ALFA-2A [Suspect]
     Indication: HEPATITIS C
     Route: 058
     Dates: start: 20101101

REACTIONS (1)
  - HAEMOLYSIS [None]
